FAERS Safety Report 7416301-9 (Version None)
Quarter: 2011Q2

REPORT INFORMATION
  Report Type: 
  Country: None (occurrence: None)
  Receive Date: 20110414
  Receipt Date: 20110411
  Transmission Date: 20111010
  Serious: Yes (Life-Threatening)
  Sender: FDA-Public Use
  Company Number: JP-ELI_LILLY_AND_COMPANY-JP201009002714

PATIENT
  Sex: Female
  Weight: 56 kg

DRUGS (7)
  1. HUMALOG [Concomitant]
     Indication: DIABETES MELLITUS
     Dosage: UNK, UNKNOWN
     Route: 058
  2. GLYBURIDE [Concomitant]
     Indication: DIABETES MELLITUS
     Dosage: 2.5 UG, QD
     Route: 048
  3. FASTIC [Concomitant]
     Indication: DIABETES MELLITUS
     Dosage: UNK, UNKNOWN
     Route: 048
     Dates: end: 20090708
  4. URSO 250 [Concomitant]
     Indication: HEPATIC FUNCTION ABNORMAL
     Dosage: 300 UG, TID
     Route: 048
  5. GEMCITABINE HYDROCHLORIDE [Suspect]
     Indication: LUNG ADENOCARCINOMA STAGE IV
     Dosage: 1580 MG, UNK
     Route: 042
     Dates: start: 20090603, end: 20090610
  6. CARBOPLATIN [Concomitant]
     Indication: LUNG ADENOCARCINOMA STAGE IV
     Dosage: 690 MG, UNKNOWN
     Route: 042
     Dates: start: 20090610, end: 20090610
  7. MYSLEE [Concomitant]
     Indication: INSOMNIA
     Dosage: UNK, UNKNOWN
     Route: 048

REACTIONS (1)
  - LUNG DISORDER [None]
